FAERS Safety Report 9240145 (Version 2)
Quarter: 2013Q4

REPORT INFORMATION
  Report Type: Spontaneous
  Country: US (occurrence: None)
  Receive Date: 20130417
  Receipt Date: 20131002
  Transmission Date: 20140711
  Serious: Yes (Hospitalization, Other)
  Sender: FDA-Public Use
  Company Number: AUR-APL-2013-03152

PATIENT
  Age: 75 Year
  Sex: Female
  Weight: 54 kg

DRUGS (12)
  1. SIMVASTATIN (SIMVASTATIN) [Suspect]
     Indication: HYPERLIPIDAEMIA
     Dosage: 20 MG, 1 D
  2. XALATAN (LATANOPROST) [Suspect]
     Indication: GLAUCOMA
     Dosage: IN BOTH EYES DAILY
     Route: 047
  3. LYRICA (PREGABALIN) [Suspect]
     Indication: FIBROMYALGIA
     Dosage: 50 MG, 1 D
     Dates: start: 201211
  4. CORTISONE ACETATE [Suspect]
     Indication: TRIGGER FINGER
  5. METOPROLOL (METOPROLOL) [Concomitant]
  6. TEMAZEPAM (TEMAZEPAM) [Concomitant]
  7. BABY ASPIRIN (ACETYLSALICYLIC ACID) [Concomitant]
  8. COENZYME Q110 (UBIDECARENONE) [Concomitant]
  9. FLAX SEED OIL (LINUM USITATISSIMUM SEED OIL) [Concomitant]
  10. BIOTIN (BIOTIN) [Concomitant]
  11. OMEPRAZOLE (OMEPRAZOLE) [Concomitant]
  12. CALCIUM CITRATE / COLECALCIFEROL (CALCIUM CITRATE W/COLECALCIFEROL) [Concomitant]

REACTIONS (10)
  - Pain in extremity [None]
  - Arthralgia [None]
  - Osteoarthritis [None]
  - Pelvic fracture [None]
  - Trigger finger [None]
  - Dizziness [None]
  - Weight increased [None]
  - Myalgia [None]
  - Alopecia [None]
  - Hangover [None]
